FAERS Safety Report 20539197 (Version 1)
Quarter: 2022Q1

REPORT INFORMATION
  Report Type: Spontaneous
  Country: GB (occurrence: GB)
  Receive Date: 20220302
  Receipt Date: 20220302
  Transmission Date: 20220423
  Serious: Yes (Hospitalization, Other)
  Sender: FDA-Public Use
  Company Number: None

PATIENT
  Age: 29 Year
  Sex: Female
  Weight: 73.02 kg

DRUGS (2)
  1. OVEX [Suspect]
     Active Substance: MEBENDAZOLE
     Indication: Helminthic infection
     Route: 048
     Dates: start: 20191108, end: 20191108
  2. OVEX [Suspect]
     Active Substance: MEBENDAZOLE
     Indication: Ill-defined disorder

REACTIONS (5)
  - Haemorrhage in pregnancy [Unknown]
  - Abortion spontaneous [Not Recovered/Not Resolved]
  - Placental disorder [Unknown]
  - Abdominal pain [Unknown]
  - Exposure during pregnancy [Not Recovered/Not Resolved]

NARRATIVE: CASE EVENT DATE: 20191108
